FAERS Safety Report 15323495 (Version 1)
Quarter: 2018Q3

REPORT INFORMATION
  Report Type: Spontaneous
  Country: DK (occurrence: DK)
  Receive Date: 20180827
  Receipt Date: 20180827
  Transmission Date: 20181010
  Serious: Yes (Hospitalization)
  Sender: FDA-Public Use
  Company Number: PHHY2018DK082534

PATIENT
  Age: 28 Year
  Sex: Male

DRUGS (1)
  1. TEGRETOL [Suspect]
     Active Substance: CARBAMAZEPINE
     Indication: HEADACHE
     Dosage: 200 MG, QD(STYRKE: 100 MG )
     Route: 048
     Dates: start: 20180713, end: 20180715

REACTIONS (3)
  - Dysarthria [Unknown]
  - Cough [Unknown]
  - Gait disturbance [Unknown]

NARRATIVE: CASE EVENT DATE: 20180715
